FAERS Safety Report 13372967 (Version 2)
Quarter: 2017Q2

REPORT INFORMATION
  Report Type: Spontaneous
  Country: IT (occurrence: IT)
  Receive Date: 20170327
  Receipt Date: 20170403
  Transmission Date: 20170830
  Serious: Yes (Hospitalization)
  Sender: FDA-Public Use
  Company Number: IT-TEVA-750577ACC

PATIENT
  Sex: Female

DRUGS (1)
  1. PACLITAXEL TEVA [Suspect]
     Active Substance: PACLITAXEL
     Indication: CERVIX CARCINOMA
     Route: 042

REACTIONS (2)
  - Feeling hot [Not Recovered/Not Resolved]
  - Cardiac arrest [Unknown]
